FAERS Safety Report 5342070-2 (Version None)
Quarter: 2007Q2

REPORT INFORMATION
  Report Type: 
  Country: None (occurrence: None)
  Receive Date: 20070409
  Receipt Date: 20050324
  Transmission Date: 20071010
  Serious: Yes (Disabling, Other)
  Sender: FDA-Public Use
  Company Number: GXBR2005US01836

PATIENT
  Age: 51 Year
  Sex: Female

DRUGS (1)
  1. OXAPROZIN [Suspect]
     Indication: PYREXIA
     Dates: start: 20030301

REACTIONS (3)
  - RASH [None]
  - SCAR [None]
  - TOXIC EPIDERMAL NECROLYSIS [None]
